FAERS Safety Report 10917797 (Version 2)
Quarter: 2015Q1

REPORT INFORMATION
  Report Type: Spontaneous
  Country: CN (occurrence: None)
  Receive Date: 20150311
  Receipt Date: 20150316
  Transmission Date: 20150721
  Serious: No
  Sender: FDA-Public Use
  Company Number: CN2015GSK026985

PATIENT
  Age: 50 Year
  Sex: Male
  Weight: 60 kg

DRUGS (2)
  1. HEPSERA [Suspect]
     Active Substance: ADEFOVIR DIPIVOXIL
     Indication: HEPATITIS B
     Route: 048
     Dates: start: 201210, end: 201410
  2. HEPTODIN [Suspect]
     Active Substance: LAMIVUDINE
     Indication: HEPATITIS B
     Route: 048
     Dates: start: 201210, end: 201410

REACTIONS (5)
  - Gastrointestinal disorder [None]
  - Nasopharyngitis [None]
  - Somnolence [None]
  - Yellow skin [None]
  - Liver function test abnormal [None]

NARRATIVE: CASE EVENT DATE: 20150222
